FAERS Safety Report 6678045-0 (Version None)
Quarter: 2010Q2

REPORT INFORMATION
  Report Type: 
  Country: None (occurrence: None)
  Receive Date: 20100412
  Receipt Date: 20100330
  Transmission Date: 20101027
  Serious: Yes (Disabling, Other)
  Sender: FDA-Public Use
  Company Number: PHHY2009FR38098

PATIENT
  Sex: Female

DRUGS (10)
  1. ZOMETA [Suspect]
     Indication: MULTIPLE MYELOMA
     Dosage: 1 DF, QMO
     Dates: start: 20080201, end: 20081201
  2. ZOMETA [Suspect]
     Dosage: 4 MG
     Route: 042
     Dates: start: 20081201
  3. ZOMETA [Suspect]
     Dosage: UNK
     Route: 042
     Dates: end: 20090911
  4. DEXAMETHASONE [Suspect]
     Indication: MULTIPLE MYELOMA
     Dosage: 400 MG, QD
     Route: 042
     Dates: start: 20090201, end: 20090801
  5. THALIDOMIDE [Suspect]
     Indication: MULTIPLE MYELOMA
     Dosage: 200 MG, QD
     Route: 048
  6. NEXIUM [Concomitant]
     Dosage: 40 MG
  7. SKENAN [Concomitant]
     Indication: PAIN
     Dosage: 10 MG, QD
     Dates: start: 20080101
  8. BIPRETERAX [Concomitant]
     Indication: HYPERTENSION
     Dosage: UNK MG, QD
     Dates: start: 20080101
  9. ATARAX [Concomitant]
     Indication: ANXIETY
     Dosage: 100 MG, QD
     Dates: start: 20080101
  10. XANAX [Concomitant]
     Dosage: 0.25 MG, QD

REACTIONS (5)
  - BONE DISORDER [None]
  - OSTEONECROSIS [None]
  - PURULENCE [None]
  - TOOTH EXTRACTION [None]
  - TOOTHACHE [None]
